FAERS Safety Report 21731918 (Version 6)
Quarter: 2023Q1

REPORT INFORMATION
  Report Type: Spontaneous
  Country: US (occurrence: US)
  Receive Date: 20221215
  Receipt Date: 20230217
  Transmission Date: 20230417
  Serious: No
  Sender: FDA-Public Use
  Company Number: US-PFIZER INC-PV202200121836

PATIENT
  Age: 4 Year
  Sex: Male
  Weight: 10.8 kg

DRUGS (2)
  1. GENOTROPIN [Suspect]
     Active Substance: SOMATROPIN
     Indication: Blood growth hormone
     Dosage: 0.4 MG, DAILY
  2. GENOTROPIN [Suspect]
     Active Substance: SOMATROPIN
     Dosage: 0.2 MG, DAILY (0.2 UNITS UNKNOWN, NIGHTLY)

REACTIONS (2)
  - Device leakage [Unknown]
  - Device temperature issue [Unknown]

NARRATIVE: CASE EVENT DATE: 20221208
